FAERS Safety Report 7910024-5 (Version None)
Quarter: 2011Q4

REPORT INFORMATION
  Report Type: 
  Country: None (occurrence: None)
  Receive Date: 20111111
  Receipt Date: 20111108
  Transmission Date: 20120403
  Serious: Yes (Hospitalization, Other)
  Sender: FDA-Public Use
  Company Number: BE-BAYER-2011-009486

PATIENT
  Sex: Female

DRUGS (1)
  1. SORAFENIB (RAF KINASE INHIBITOR) [Suspect]
     Indication: RENAL CELL CARCINOMA
     Dosage: DAILY DOSE 800 MG
     Route: 048
     Dates: start: 20110120, end: 20111018

REACTIONS (12)
  - WEIGHT DECREASED [None]
  - NAUSEA [None]
  - DECREASED APPETITE [None]
  - DIARRHOEA [None]
  - HYPERTENSION [None]
  - HYPERAESTHESIA [None]
  - ABDOMINAL PAIN UPPER [None]
  - PRURITUS [None]
  - CONSTIPATION [None]
  - CHOLELITHIASIS OBSTRUCTIVE [None]
  - HEADACHE [None]
  - ERYTHEMA [None]
